FAERS Safety Report 10955670 (Version 1)
Quarter: 2015Q1

REPORT INFORMATION
  Report Type: Spontaneous
  Country: US (occurrence: None)
  Receive Date: 20150226
  Receipt Date: 20150226
  Transmission Date: 20150721
  Serious: Yes (Hospitalization)
  Sender: FDA-Public Use
  Company Number: TPA2011A03047

PATIENT
  Age: 41 Year
  Sex: Female
  Weight: 72.58 kg

DRUGS (4)
  1. ACTOS [Suspect]
     Active Substance: PIOGLITAZONE HYDROCHLORIDE
     Indication: TYPE 2 DIABETES MELLITUS
     Route: 048
     Dates: start: 2010, end: 20110606
  2. HUMALOG PEN (INSULIN LISPRO) [Concomitant]
  3. LAXATIVES [Concomitant]
     Active Substance: UNSPECIFIED INGREDIENT
  4. METFORMIN [Concomitant]
     Active Substance: METFORMIN HYDROCHLORIDE

REACTIONS (11)
  - Abdominal pain [None]
  - Hyperhidrosis [None]
  - Oedema peripheral [None]
  - Hot flush [None]
  - Hunger [None]
  - Nausea [None]
  - Headache [None]
  - Bone pain [None]
  - Abdominal distension [None]
  - Feeling cold [None]
  - Influenza like illness [None]

NARRATIVE: CASE EVENT DATE: 2011
